FAERS Safety Report 8997308 (Version 1)
Quarter: 2013Q1

REPORT INFORMATION
  Report Type: Spontaneous
  Country: US (occurrence: US)
  Receive Date: 20130104
  Receipt Date: 20130104
  Transmission Date: 20140127
  Serious: No
  Sender: FDA-Public Use
  Company Number: US-009507513-1301USA000463

PATIENT
  Sex: 0

DRUGS (1)
  1. PRINZIDE [Suspect]
     Route: 048

REACTIONS (1)
  - Fatigue [Unknown]
